FAERS Safety Report 24032428 (Version 1)
Quarter: 2024Q3

REPORT INFORMATION
  Report Type: Spontaneous
  Country: US (occurrence: US)
  Receive Date: 20240701
  Receipt Date: 20240701
  Transmission Date: 20241016
  Serious: No
  Sender: TEIKOKU
  Company Number: US-TPU-TPU-2024-00276

PATIENT
  Age: 95 Year
  Sex: Female

DRUGS (4)
  1. LIDOCAINE [Suspect]
     Active Substance: LIDOCAINE
     Indication: Compression fracture
     Dates: start: 2018
  2. LIDOCAINE [Suspect]
     Active Substance: LIDOCAINE
     Dates: start: 202104
  3. LIDOCAINE [Suspect]
     Active Substance: LIDOCAINE
     Dates: start: 20240605
  4. TYLENOL [Concomitant]
     Active Substance: ACETAMINOPHEN

REACTIONS (3)
  - Speech disorder [Unknown]
  - Visual impairment [Unknown]
  - Rib fracture [Unknown]
